FAERS Safety Report 9464608 (Version 3)
Quarter: 2014Q2

REPORT INFORMATION
  Report Type: Report from Study
  Country: US (occurrence: US)
  Receive Date: 20130819
  Receipt Date: 20140630
  Transmission Date: 20141212
  Serious: Yes (Hospitalization, Other)
  Sender: FDA-Public Use
  Company Number: US-ALEXION PHARMACEUTICALS INC.-A201301938

PATIENT
  Sex: 0

DRUGS (1)
  1. SOLIRIS [Suspect]
     Indication: HAEMOLYTIC URAEMIC SYNDROME
     Dosage: UNK
     Route: 042

REACTIONS (10)
  - Renal failure chronic [Unknown]
  - Renal failure acute [Unknown]
  - Dialysis [Unknown]
  - Plasmapheresis [Unknown]
  - Transplant rejection [Unknown]
  - Renal tubular necrosis [Unknown]
  - Localised oedema [Unknown]
  - Cystitis [Unknown]
  - Pain [Unknown]
  - International normalised ratio increased [Unknown]
